FAERS Safety Report 4310074-4 (Version None)
Quarter: 2004Q1

REPORT INFORMATION
  Report Type: 
  Country: None (occurrence: None)
  Receive Date: 20040301
  Receipt Date: 20031104
  Transmission Date: 20041129
  Serious: No
  Sender: FDA-Public Use
  Company Number: WAES 0310USA01769

PATIENT
  Age: 71 Year
  Sex: Female
  Weight: 74.8435 kg

DRUGS (1)
  1. ZETIA [Suspect]
     Indication: BLOOD CHOLESTEROL INCREASED
     Dosage: 10 MG/DAILY/PO
     Route: 048
     Dates: start: 20030926, end: 20031014

REACTIONS (4)
  - ABDOMINAL PAIN [None]
  - BACK PAIN [None]
  - MYALGIA [None]
  - NON-CARDIAC CHEST PAIN [None]
